FAERS Safety Report 23675769 (Version 1)
Quarter: 2024Q1

REPORT INFORMATION
  Report Type: Spontaneous
  Country: ES (occurrence: ES)
  Receive Date: 20240327
  Receipt Date: 20240327
  Transmission Date: 20240410
  Serious: Yes (Other)
  Sender: FDA-Public Use
  Company Number: None

PATIENT
  Age: 60 Year
  Sex: Male
  Weight: 103 kg

DRUGS (15)
  1. CARBOPLATIN [Suspect]
     Active Substance: CARBOPLATIN
     Indication: B-cell lymphoma
     Dosage: CYCLE 2 (625 MG IV ON 2ND DAY OF CYCLE, 21-DAY CYCLES)
     Route: 042
     Dates: start: 20210626, end: 20210626
  2. ETOPOSIDE [Suspect]
     Active Substance: ETOPOSIDE
     Indication: B-cell lymphoma
     Dosage: CYCLE 3 (200 MG/DAY IV FOR THE FIRST 3 DAYS OF EACH CYCLE, 21-DAY CYCLES)
     Route: 042
     Dates: start: 20210811, end: 20210813
  3. IFOSFAMIDE [Suspect]
     Active Substance: IFOSFAMIDE
     Indication: B-cell lymphoma
     Dosage: CYCLE 2 (1000 MG IV ON 2ND DAY OF CYCLE, CYCLES EVERY 21 DAYS)
     Route: 042
     Dates: start: 20210626, end: 20210626
  4. RITUXIMAB [Suspect]
     Active Substance: RITUXIMAB
     Indication: B-cell lymphoma
     Dosage: CYCLE 2 (750 MG IV ON THE FIRST DAY OF CYCLE, CYCLES EVERY 21 DAYS)
     Route: 042
     Dates: start: 20210625, end: 20210625
  5. POLATUZUMAB VEDOTIN [Suspect]
     Active Substance: POLATUZUMAB VEDOTIN
     Indication: B-cell lymphoma
     Dosage: CYCLE 2 (227 MG IV FIRST DAY OF EACH CYCLE, 21 DAY CYCLES)
     Route: 042
     Dates: start: 20210625, end: 20210625
  6. ETOPOSIDE [Suspect]
     Active Substance: ETOPOSIDE
     Indication: B-cell lymphoma
     Dosage: CYCLE 1 (200 MG/DAY IV FOR THE FIRST 3 DAYS OF EACH CYCLE, 21-DAY CYCLES)
     Route: 042
     Dates: start: 20210604, end: 20210606
  7. ETOPOSIDE [Suspect]
     Active Substance: ETOPOSIDE
     Indication: B-cell lymphoma
     Dosage: CYCLE 2 (200 MG/DAY IV FOR THE FIRST 3 DAYS OF EACH CYCLE, 21-DAY CYCLES)
     Route: 042
     Dates: start: 20210625, end: 20210627
  8. CARBOPLATIN [Suspect]
     Active Substance: CARBOPLATIN
     Indication: B-cell lymphoma
     Dosage: CYCLE 3 (625 MG IV ON 2ND DAY OF CYCLE, 21-DAY CYCLES)
     Route: 042
     Dates: start: 20210812, end: 20210812
  9. CARBOPLATIN [Suspect]
     Active Substance: CARBOPLATIN
     Indication: B-cell lymphoma
     Dosage: CYCLE 1 (738 MG IV ON 2ND DAY OF CYCLE, 21-DAY CYCLES)
     Route: 042
     Dates: start: 20210605, end: 20210605
  10. IFOSFAMIDE [Suspect]
     Active Substance: IFOSFAMIDE
     Indication: B-cell lymphoma
     Dosage: CYCLE 1 (738 MG IV ON 2ND DAY OF CYCLE, 21-DAY CYCLES)
     Route: 042
     Dates: start: 20210605, end: 20210605
  11. IFOSFAMIDE [Suspect]
     Active Substance: IFOSFAMIDE
     Indication: B-cell lymphoma
     Dosage: CYCLE 3 (REDUCED DOSE TO 750 MG IV ON 2ND DAY OF CYCLE, CYCLES EVERY 21?DAYS)
     Route: 042
     Dates: start: 20210812, end: 20210812
  12. RITUXIMAB [Suspect]
     Active Substance: RITUXIMAB
     Indication: B-cell lymphoma
     Dosage: CYCLE 1 (750 MG IV ON THE FIRST DAY, CYCLES EVERY 21 DAYS)
     Route: 042
     Dates: start: 20210604, end: 20210604
  13. RITUXIMAB [Suspect]
     Active Substance: RITUXIMAB
     Indication: B-cell lymphoma
     Dosage: CYCLE 3 (750 MG IV ON THE FIRST DAY OF CYCLE, CYCLES EVERY 21 DAYS)
     Route: 042
     Dates: start: 20210811, end: 20210811
  14. POLATUZUMAB VEDOTIN [Suspect]
     Active Substance: POLATUZUMAB VEDOTIN
     Indication: B-cell lymphoma
     Dosage: CYCLE 1 (227 MG IV FIRST DAY OF EACH CYCLE, 21 DAY CYCLES)
     Route: 042
     Dates: start: 20210604, end: 20210604
  15. POLATUZUMAB VEDOTIN [Suspect]
     Active Substance: POLATUZUMAB VEDOTIN
     Indication: B-cell lymphoma
     Dosage: CYCLE 3 (227 MG IV FIRST DAY OF EACH CYCLE, 21 DAY CYCLES)
     Route: 042
     Dates: start: 20210811, end: 20210811

REACTIONS (2)
  - Ejection fraction decreased [Recovered/Resolved]
  - Cardiotoxicity [Recovered/Resolved]

NARRATIVE: CASE EVENT DATE: 20210701
